FAERS Safety Report 7749828-0 (Version None)
Quarter: 2011Q3

REPORT INFORMATION
  Report Type: 
  Country: None (occurrence: None)
  Receive Date: 20110914
  Receipt Date: 20110908
  Transmission Date: 20111222
  Serious: Yes (Other)
  Sender: FDA-Public Use
  Company Number: JP-ROCHE-801893

PATIENT
  Age: 78 Year
  Sex: Male

DRUGS (5)
  1. FLUOROURACIL [Concomitant]
     Dosage: NOTE: DOSAGE IS UNCERTAIN
     Route: 041
  2. LEUCOVORIN CALCIUM [Concomitant]
     Dosage: NOTE: DOSAGE IS UNCERTAIN
     Route: 041
  3. AVASTIN [Suspect]
     Indication: LARGE INTESTINE CARCINOMA
     Route: 041
  4. FLUOROURACIL [Concomitant]
     Dosage: NOTE: DOSAGE IS UNCERTAIN
     Route: 040
  5. OXALIPLATIN [Concomitant]
     Dosage: NOTE: DOSAGE IS UNCERTAIN
     Route: 041

REACTIONS (1)
  - HYPERAMMONAEMIA [None]
